FAERS Safety Report 12285380 (Version 1)
Quarter: 2016Q2

REPORT INFORMATION
  Report Type: Spontaneous
  Country: US (occurrence: None)
  Receive Date: 20160419
  Receipt Date: 20160419
  Transmission Date: 20160815
  Serious: No
  Sender: FDA-Public Use
  Company Number: None

PATIENT

DRUGS (3)
  1. VERSED [Concomitant]
     Active Substance: MIDAZOLAM HYDROCHLORIDE
  2. PROPOFOL. [Concomitant]
     Active Substance: PROPOFOL
  3. PROHANCE [Suspect]
     Active Substance: GADOTERIDOL
     Route: 042
     Dates: start: 20160415

REACTIONS (4)
  - Urticaria [None]
  - Wheezing [None]
  - Flushing [None]
  - Tachycardia [None]

NARRATIVE: CASE EVENT DATE: 20160415
